FAERS Safety Report 7459289-7 (Version None)
Quarter: 2011Q2

REPORT INFORMATION
  Report Type: 
  Country: None (occurrence: None)
  Receive Date: 20110505
  Receipt Date: 20110502
  Transmission Date: 20111010
  Serious: No
  Sender: FDA-Public Use
  Company Number: US-PFIZER INC-2011094417

PATIENT
  Sex: Male

DRUGS (1)
  1. ALAVERT [Suspect]
     Indication: HYPERSENSITIVITY
     Dosage: 1 TABLET, 1X/DAY

REACTIONS (2)
  - OVERDOSE [None]
  - DRUG INEFFECTIVE [None]
